FAERS Safety Report 6249282-4 (Version None)
Quarter: 2009Q2

REPORT INFORMATION
  Report Type: 
  Country: None (occurrence: None)
  Receive Date: 20090629
  Receipt Date: 20090309
  Transmission Date: 20091009
  Serious: Yes (Hospitalization, Other)
  Sender: FDA-Public Use
  Company Number: US-BRISTOL-MYERS SQUIBB COMPANY-14536742

PATIENT
  Age: 63 Year
  Sex: Female

DRUGS (2)
  1. SPRYCEL [Suspect]
     Indication: CHRONIC MYELOID LEUKAEMIA
     Dosage: STOPPED + RESUMED IN DEC08 AT 50MG EVY OTHR DAY INCREASED TO (50MG/D)FOR 2 MONTHS; THEN TO 70MG
     Dates: start: 20080801
  2. ANTIHYPERTENSIVE [Concomitant]

REACTIONS (2)
  - PANCYTOPENIA [None]
  - PLEURAL EFFUSION [None]
